FAERS Safety Report 24823406 (Version 1)
Quarter: 2025Q1

REPORT INFORMATION
  Report Type: Spontaneous
  Country: US (occurrence: US)
  Receive Date: 20250109
  Receipt Date: 20250109
  Transmission Date: 20250409
  Serious: No
  Sender: STALLERGENES
  Company Number: US-AIMMUNE THERAPEUTICS, INC.-2024AIMT00318

PATIENT
  Age: 4 Year
  Sex: Male
  Weight: 18.957 kg

DRUGS (7)
  1. PALFORZIA [Suspect]
     Active Substance: PEANUT
     Indication: Food allergy
     Dates: start: 20240123, end: 20240123
  2. PALFORZIA [Suspect]
     Active Substance: PEANUT
     Dates: start: 20240206, end: 20240206
  3. PALFORZIA [Suspect]
     Active Substance: PEANUT
     Dosage: 3 MG, 2X/DAY, DOSE SPLIT
     Dates: start: 20240207, end: 20240301
  4. ALBUTEROL [Concomitant]
     Active Substance: ALBUTEROL
     Indication: Asthma
  5. EPIPEN [Concomitant]
     Active Substance: EPINEPHRINE
     Indication: Anaphylactic reaction
  6. FLOVENT [Concomitant]
     Active Substance: FLUTICASONE PROPIONATE
     Indication: Asthma
  7. TRIAMCINOLONE [Concomitant]
     Active Substance: TRIAMCINOLONE
     Indication: Eczema

REACTIONS (2)
  - Abdominal discomfort [Recovered/Resolved]
  - Vomiting [Recovered/Resolved]

NARRATIVE: CASE EVENT DATE: 20240206
